FAERS Safety Report 7996935-3 (Version None)
Quarter: 2011Q4

REPORT INFORMATION
  Report Type: 
  Country: None (occurrence: None)
  Receive Date: 20111216
  Receipt Date: 20111209
  Transmission Date: 20120403
  Serious: Yes (Hospitalization)
  Sender: FDA-Public Use
  Company Number: 127415

PATIENT
  Age: 37 Year
  Sex: Female

DRUGS (1)
  1. CYTARABINE [Suspect]
     Indication: ACUTE MYELOID LEUKAEMIA

REACTIONS (3)
  - HIDRADENITIS [None]
  - LEUKOCYTOCLASTIC VASCULITIS [None]
  - POST INFLAMMATORY PIGMENTATION CHANGE [None]
